FAERS Safety Report 6607770-2 (Version None)
Quarter: 2010Q1

REPORT INFORMATION
  Report Type: 
  Country: None (occurrence: None)
  Receive Date: 20100212
  Receipt Date: 20091223
  Transmission Date: 20100710
  Serious: No
  Sender: FDA-Public Use
  Company Number: 1000010993

PATIENT
  Age: 49 Year
  Sex: Female

DRUGS (6)
  1. SAVELLA [Suspect]
     Indication: FIBROMYALGIA
     Dosage: 12.5 MG (12.5 MG, 1 IN 1 D), ORAL; 25 MG (25 MG, 1 IN 1 D), ORAL; 6.25 MG (6.25 MG, 1 IN 1 D), ORAL
     Route: 048
     Dates: start: 20091123, end: 20091124
  2. SAVELLA [Suspect]
     Indication: FIBROMYALGIA
     Dosage: 12.5 MG (12.5 MG, 1 IN 1 D), ORAL; 25 MG (25 MG, 1 IN 1 D), ORAL; 6.25 MG (6.25 MG, 1 IN 1 D), ORAL
     Route: 048
     Dates: start: 20091125, end: 20091125
  3. SAVELLA [Suspect]
     Indication: FIBROMYALGIA
     Dosage: 12.5 MG (12.5 MG, 1 IN 1 D), ORAL; 25 MG (25 MG, 1 IN 1 D), ORAL; 6.25 MG (6.25 MG, 1 IN 1 D), ORAL
     Route: 048
     Dates: start: 20091130, end: 20091202
  4. LISINOPRIL [Concomitant]
  5. PRAVASTATIN [Concomitant]
  6. MELOXICAM [Concomitant]

REACTIONS (19)
  - ANXIETY [None]
  - COGNITIVE DISORDER [None]
  - CONSTIPATION [None]
  - DECREASED APPETITE [None]
  - DISTURBANCE IN ATTENTION [None]
  - FATIGUE [None]
  - FEELING ABNORMAL [None]
  - GAIT DISTURBANCE [None]
  - HEADACHE [None]
  - HYPERACUSIS [None]
  - MENTAL IMPAIRMENT [None]
  - MYALGIA [None]
  - NAUSEA [None]
  - PAIN [None]
  - PHOTOPHOBIA [None]
  - REFLEXES ABNORMAL [None]
  - SPEECH DISORDER [None]
  - TINNITUS [None]
  - TREMOR [None]
